FAERS Safety Report 6279388-5 (Version None)
Quarter: 2009Q3

REPORT INFORMATION
  Report Type: 
  Country: None (occurrence: None)
  Receive Date: 20090723
  Receipt Date: 20090722
  Transmission Date: 20100115
  Serious: Yes (Life-Threatening, Hospitalization, Disabling)
  Sender: FDA-Public Use
  Company Number: JP-B.I. PHARMACEUTICALS,INC./RIDGEFIELD-2009-BP-05982NB

PATIENT
  Sex: Male
  Weight: 56.9 kg

DRUGS (15)
  1. MICARDIS [Suspect]
     Indication: HYPERTENSION
     Dosage: 40 MG
     Route: 048
     Dates: start: 20040101, end: 20090512
  2. AMARYL [Concomitant]
     Indication: TYPE 2 DIABETES MELLITUS
     Dosage: 1 MG
     Route: 048
     Dates: start: 20030701
  3. DIBETOS [Concomitant]
     Dosage: 150 MG
     Route: 048
     Dates: start: 20011001, end: 20090512
  4. ARTIST [Concomitant]
     Indication: HYPERTENSION
     Dosage: 10 MG
     Route: 048
     Dates: start: 20030701, end: 20090512
  5. BASEN OD [Concomitant]
     Indication: TYPE 2 DIABETES MELLITUS
     Dosage: 0.9 MG
     Route: 048
     Dates: start: 20010701, end: 20090512
  6. MEVALOTIN [Concomitant]
     Indication: HYPERLIPIDAEMIA
     Dosage: 5 MG
     Route: 048
     Dates: start: 20090301, end: 20090512
  7. GASTER [Concomitant]
     Dosage: 20 MG
     Route: 048
     Dates: start: 20090201, end: 20090512
  8. ALDOMET [Concomitant]
     Dosage: 250 MG
     Route: 048
     Dates: start: 20031201, end: 20090516
  9. EPADEL S [Concomitant]
     Indication: HYPERLIPIDAEMIA
     Dosage: 1800 MG
     Route: 048
     Dates: start: 20081001, end: 20090512
  10. DIART [Concomitant]
     Indication: HYPERTENSION
     Dosage: 60 MG
     Route: 048
     Dates: start: 20081201, end: 20090512
  11. ZYLORIC [Concomitant]
     Dosage: 100 MG
     Route: 048
     Dates: start: 20090301
  12. NOVORAPID MIX [Concomitant]
     Indication: TYPE 2 DIABETES MELLITUS
     Dosage: 60 U
     Route: 058
     Dates: start: 20081201, end: 20090512
  13. ASPIRIN [Concomitant]
     Dosage: 100 MG
     Route: 048
  14. PLETAL [Concomitant]
     Dosage: 100 MG
     Route: 048
  15. DORNER [Concomitant]
     Dosage: 60 MCG
     Route: 048
     Dates: start: 20081201

REACTIONS (6)
  - ARTERIOSCLEROSIS CORONARY ARTERY [None]
  - DIARRHOEA [None]
  - FEMORAL ARTERY OCCLUSION [None]
  - INFECTION [None]
  - RASH [None]
  - RENAL IMPAIRMENT [None]
